FAERS Safety Report 8939230 (Version 3)
Quarter: 2013Q2

REPORT INFORMATION
  Report Type: Spontaneous
  Country: US (occurrence: US)
  Receive Date: 20121203
  Receipt Date: 20130404
  Transmission Date: 20140414
  Serious: Yes (Death, Hospitalization, Other)
  Sender: FDA-Public Use
  Company Number: US-PFIZER INC-2012268247

PATIENT
  Age: 75 Year
  Sex: Female
  Weight: 52.15 kg

DRUGS (4)
  1. VFEND [Suspect]
     Indication: PNEUMONIA FUNGAL
     Dosage: 200 MG, 2X/DAY
     Route: 048
     Dates: start: 20120727, end: 201209
  2. VFEND [Suspect]
     Dosage: 200 MG, 2X/DAY
     Route: 048
  3. ALLOPURINOL [Concomitant]
     Indication: GOUT
     Dosage: UNK
  4. FAMCICLOVIR [Concomitant]
     Indication: SKIN INFECTION
     Dosage: 500 MG, 2X/DAY

REACTIONS (4)
  - Disease progression [Fatal]
  - Acute myeloid leukaemia [Fatal]
  - Pneumonia fungal [Fatal]
  - White blood cell count abnormal [Unknown]
